FAERS Safety Report 10930975 (Version 1)
Quarter: 2015Q1

REPORT INFORMATION
  Report Type: Spontaneous
  Country: JP (occurrence: None)
  Receive Date: 20150317
  Receipt Date: 20150317
  Transmission Date: 20150721
  Serious: Yes (Life-Threatening)
  Sender: FDA-Public Use
  Company Number: 2015BCR00092

PATIENT
  Age: 77 Year
  Sex: Female

DRUGS (2)
  1. CEFAMEZIN [Suspect]
     Active Substance: CEFAZOLIN
     Route: 042
     Dates: start: 20150128, end: 20150128
  2. RAPIACTA [Suspect]
     Active Substance: PERAMIVIR
     Indication: INFLUENZA
     Route: 042
     Dates: start: 20150128, end: 20150128

REACTIONS (1)
  - Anaphylactic reaction [None]

NARRATIVE: CASE EVENT DATE: 20150128
